FAERS Safety Report 12690367 (Version 4)
Quarter: 2016Q4

REPORT INFORMATION
  Report Type: Spontaneous
  Country: US (occurrence: US)
  Receive Date: 20160826
  Receipt Date: 20161028
  Transmission Date: 20170207
  Serious: Yes (Hospitalization, Other)
  Sender: FDA-Public Use
  Company Number: US-009507513-1608USA009553

PATIENT
  Sex: Male

DRUGS (1)
  1. ZEPATIER [Suspect]
     Active Substance: ELBASVIR\GRAZOPREVIR
     Indication: HEPATITIS C
     Dosage: UNK
     Route: 048

REACTIONS (5)
  - Bilirubin conjugated increased [Unknown]
  - Liver disorder [Unknown]
  - Blood bilirubin unconjugated increased [Unknown]
  - Renal failure [Unknown]
  - Disease progression [Unknown]
